FAERS Safety Report 9916389 (Version 1)
Quarter: 2014Q1

REPORT INFORMATION
  Report Type: Spontaneous
  Country: US (occurrence: None)
  Receive Date: 20140219
  Receipt Date: 20140219
  Transmission Date: 20141002
  Serious: Yes (Other)
  Sender: FDA-Public Use
  Company Number: 2182636

PATIENT
  Age: 75 Year
  Sex: Female

DRUGS (1)
  1. HYDROMORPHONE HYDROCHLORIDE [Suspect]
     Indication: ABDOMINAL PAIN
     Dosage: 2 MG MILLIGRAM(S),UKNOWN, INTRAVENOUS
     Route: 042

REACTIONS (3)
  - Unresponsive to stimuli [None]
  - Bradycardia [None]
  - Atrioventricular block complete [None]
